FAERS Safety Report 9971062 (Version 1)
Quarter: 2014Q1

REPORT INFORMATION
  Report Type: Report from Study
  Country: US (occurrence: US)
  Receive Date: 20140306
  Receipt Date: 20140306
  Transmission Date: 20141002
  Serious: No
  Sender: FDA-Public Use
  Company Number: US-ABBVIE-13P-163-1151032-00

PATIENT
  Age: 15 Year
  Sex: Male
  Weight: 69.4 kg

DRUGS (6)
  1. HUMIRA [Suspect]
     Indication: CROHN^S DISEASE
     Dosage: 2
     Route: 058
     Dates: start: 20130708, end: 20130916
  2. HUMIRA [Suspect]
     Dates: start: 20130917
  3. NEXIUM [Concomitant]
     Indication: CROHN^S DISEASE
  4. MELATONIN [Concomitant]
     Indication: INSOMNIA
  5. MAXALT [Concomitant]
     Indication: MIGRAINE
  6. ALBUTEROL [Concomitant]
     Indication: ASTHMA
     Dosage: PRN

REACTIONS (3)
  - Fatigue [Not Recovered/Not Resolved]
  - Diarrhoea [Not Recovered/Not Resolved]
  - Abdominal pain [Not Recovered/Not Resolved]
